FAERS Safety Report 5232828-2 (Version None)
Quarter: 2007Q1

REPORT INFORMATION
  Report Type: 
  Country: None (occurrence: None)
  Receive Date: 20070207
  Receipt Date: 20070123
  Transmission Date: 20070707
  Serious: Yes (Hospitalization)
  Sender: FDA-Public Use
  Company Number: US-ROCHE-479596

PATIENT
  Sex: Female

DRUGS (4)
  1. PEGASYS [Suspect]
     Indication: HEPATITIS C
     Dosage: PATIENT WAS ON TREATMENT FOR 9 MONTHS, 2 YEARS AGO.
     Route: 065
     Dates: start: 20050615
  2. RIBAVIRIN [Suspect]
     Indication: DRUG USE FOR UNKNOWN INDICATION
     Dosage: PATIENT WAS ON TREATMENT FOR 9 MONTHS, 2 YEARS AGO.
     Route: 065
     Dates: start: 20050615
  3. OMNICEF [Suspect]
     Indication: TONSILLITIS
     Route: 065
  4. VITAMINS NOS [Concomitant]

REACTIONS (19)
  - ALLERGY TO CHEMICALS [None]
  - BLOOD GLUCOSE DECREASED [None]
  - DIARRHOEA [None]
  - DRUG HYPERSENSITIVITY [None]
  - EXTRASYSTOLES [None]
  - FOOD ALLERGY [None]
  - HOUSE DUST ALLERGY [None]
  - INFLUENZA LIKE ILLNESS [None]
  - INTERVERTEBRAL DISC PROTRUSION [None]
  - MILK ALLERGY [None]
  - PHOTOSENSITIVITY REACTION [None]
  - SKIN EXFOLIATION [None]
  - SKIN NODULE [None]
  - STOMATITIS [None]
  - SWELLING [None]
  - TONSILLITIS [None]
  - VASCULITIS [None]
  - WEIGHT INCREASED [None]
  - WHITE BLOOD CELL COUNT DECREASED [None]
